FAERS Safety Report 6869684-2 (Version None)
Quarter: 2010Q3

REPORT INFORMATION
  Report Type: 
  Country: None (occurrence: None)
  Receive Date: 20100722
  Receipt Date: 20080813
  Transmission Date: 20110219
  Serious: No
  Sender: FDA-Public Use
  Company Number: US-PFIZER INC-2008069608

PATIENT
  Age: 40 Year
  Sex: Male

DRUGS (1)
  1. CHANTIX [Suspect]
     Indication: SMOKING CESSATION THERAPY

REACTIONS (5)
  - ANGER [None]
  - FEELING ABNORMAL [None]
  - HEAD DISCOMFORT [None]
  - PALPITATIONS [None]
  - PERSONALITY CHANGE [None]
